FAERS Safety Report 7383898-7 (Version None)
Quarter: 2011Q1

REPORT INFORMATION
  Report Type: 
  Country: None (occurrence: None)
  Receive Date: 20110330
  Receipt Date: 20110322
  Transmission Date: 20110831
  Serious: Yes (Other)
  Sender: FDA-Public Use
  Company Number: US-AMGEN-USASP2011015583

PATIENT
  Sex: Female

DRUGS (2)
  1. SENSIPAR [Suspect]
  2. SENSIPAR [Suspect]
     Indication: HYPERPARATHYROIDISM SECONDARY
     Dosage: 30 MG, QD

REACTIONS (4)
  - SWELLING [None]
  - TENDERNESS [None]
  - PHARYNGEAL OEDEMA [None]
  - DYSPHAGIA [None]
